FAERS Safety Report 7989642-4 (Version None)
Quarter: 2011Q4

REPORT INFORMATION
  Report Type: 
  Country: None (occurrence: None)
  Receive Date: 20111219
  Receipt Date: 20111209
  Transmission Date: 20120403
  Serious: Yes (Hospitalization, Other)
  Sender: FDA-Public Use
  Company Number: JP-GENZYME-THYM-1002497

PATIENT
  Age: 46 Year
  Sex: Female
  Weight: 63 kg

DRUGS (5)
  1. FILGRASTIM [Concomitant]
     Indication: INFECTION PROPHYLAXIS
     Dosage: 300 MCG, QD
     Dates: start: 20110422, end: 20110502
  2. PREDNISOLONE [Concomitant]
     Indication: APLASTIC ANAEMIA
     Dosage: 60 MG, QD
     Dates: start: 20110425, end: 20110526
  3. SULFAMETHOPRIM [Concomitant]
     Indication: INFECTION PROPHYLAXIS
     Dosage: 4 DF, BID
     Dates: start: 20110421
  4. CYCLOSPORINE [Concomitant]
     Indication: APLASTIC ANAEMIA
     Dosage: 150 MG, BID
     Dates: start: 20110420, end: 20110531
  5. THYMOGLOBULIN [Suspect]
     Indication: APLASTIC ANAEMIA
     Dosage: 225 MG, QD
     Route: 042
     Dates: start: 20110420, end: 20110424

REACTIONS (4)
  - EPSTEIN-BARR VIRAEMIA [None]
  - HERPES SIMPLEX [None]
  - PANCYTOPENIA [None]
  - CYTOMEGALOVIRUS INFECTION [None]
